FAERS Safety Report 8138964-5 (Version None)
Quarter: 2012Q1

REPORT INFORMATION
  Report Type: 
  Country: None (occurrence: None)
  Receive Date: 20120215
  Receipt Date: 20120203
  Transmission Date: 20120608
  Serious: Yes (Hospitalization, Other)
  Sender: FDA-Public Use
  Company Number: US-SANOFI-AVENTIS-2012SA005321

PATIENT
  Age: 63 Year
  Sex: Female
  Weight: 74.4 kg

DRUGS (15)
  1. ELOXATIN [Suspect]
     Dosage: 85MG/M2
     Route: 042
     Dates: start: 20120111, end: 20120111
  2. PHENERGAN [Concomitant]
     Indication: VOMITING
     Dates: start: 20111130
  3. DIPHENHYDRAMINE HCL [Concomitant]
  4. ELOXATIN [Suspect]
     Route: 042
     Dates: start: 20111130, end: 20111130
  5. ELOXATIN [Suspect]
     Route: 042
     Dates: start: 20111228, end: 20111228
  6. AVASTIN [Concomitant]
     Dates: start: 20111214, end: 20120110
  7. ELOXATIN [Suspect]
     Dosage: 85MG/M2
     Route: 042
     Dates: start: 20120111, end: 20120111
  8. ACETAMINOPHEN [Concomitant]
  9. AVASTIN [Concomitant]
     Dates: start: 20120112
  10. ZOFRAN [Concomitant]
     Indication: VOMITING
     Route: 048
     Dates: start: 20111230
  11. LISINOPRIL [Concomitant]
     Indication: HYPERTENSION
  12. ELOXATIN [Suspect]
     Route: 042
     Dates: start: 20111130, end: 20111130
  13. ELOXATIN [Suspect]
     Route: 042
     Dates: start: 20111228, end: 20111228
  14. ZOFRAN [Concomitant]
     Indication: NAUSEA
     Route: 048
     Dates: start: 20111230
  15. PHENERGAN [Concomitant]
     Indication: NAUSEA
     Dates: start: 20111130

REACTIONS (9)
  - STRIDOR [None]
  - PALLOR [None]
  - VENTRICULAR FIBRILLATION [None]
  - EYELID PTOSIS [None]
  - HYPERTENSION [None]
  - FACIAL PARESIS [None]
  - CARDIAC ARREST [None]
  - HYPERSENSITIVITY [None]
  - DYSPNOEA [None]
